FAERS Safety Report 17185865 (Version 2)
Quarter: 2020Q2

REPORT INFORMATION
  Report Type: Spontaneous
  Country: US (occurrence: US)
  Receive Date: 20191220
  Receipt Date: 20200403
  Transmission Date: 20200713
  Serious: No
  Sender: FDA-Public Use
  Company Number: US-JNJFOC-20191226023

PATIENT
  Sex: Female
  Weight: 161.2 kg

DRUGS (5)
  1. RISPERDAL [Suspect]
     Active Substance: RISPERIDONE
     Indication: SENSORY DISTURBANCE
     Route: 048
     Dates: start: 20190502, end: 20190719
  2. RISPERDAL [Suspect]
     Active Substance: RISPERIDONE
     Indication: IRRITABILITY
  3. TRILEPTAL [Concomitant]
     Active Substance: OXCARBAZEPINE
     Route: 065
     Dates: start: 201905, end: 201907
  4. TRAZODONE [Concomitant]
     Active Substance: TRAZODONE HYDROCHLORIDE
     Dosage: 100-150 MG
     Route: 065
     Dates: start: 201905, end: 201907
  5. ATOMOXETINE. [Concomitant]
     Active Substance: ATOMOXETINE HYDROCHLORIDE
     Route: 065
     Dates: start: 201905, end: 201907

REACTIONS (3)
  - Galactorrhoea [Recovered/Resolved]
  - Off label use [Unknown]
  - Product use in unapproved indication [Unknown]
